FAERS Safety Report 6525440-6 (Version None)
Quarter: 2009Q4

REPORT INFORMATION
  Report Type: 
  Country: None (occurrence: None)
  Receive Date: 20091222
  Receipt Date: 20091210
  Transmission Date: 20100525
  Serious: Yes (Other)
  Sender: FDA-Public Use
  Company Number: 1000010121

PATIENT
  Age: 58 Year
  Sex: Female
  Weight: 58 kg

DRUGS (7)
  1. ESCITALOPRAM [Suspect]
     Indication: DEPRESSION
     Dosage: 0.5 DOSAGE FORMS (0.5 DOSAGE FORMS, 1 IN 1 D),ORAL;  1 DOSAGE FORMS (1 DOSAGE FORMS, 1 IN 1 D), ORAL
     Route: 048
     Dates: start: 20090921, end: 20090924
  2. ESCITALOPRAM [Suspect]
     Indication: DEPRESSION
     Dosage: 0.5 DOSAGE FORMS (0.5 DOSAGE FORMS, 1 IN 1 D),ORAL;  1 DOSAGE FORMS (1 DOSAGE FORMS, 1 IN 1 D), ORAL
     Route: 048
     Dates: start: 20090925, end: 20091022
  3. ESCITALOPRAM [Suspect]
     Indication: DEPRESSION
     Dosage: 1.5 DOSAGE FORMS (1.5 DOSAGE FORMS, 1 IN 1 D), ORAL
     Route: 048
     Dates: start: 20091023, end: 20091108
  4. INFLUENZA VIRUS VACCINE [Suspect]
     Indication: PROPHYLAXIS
  5. LOVENOX [Concomitant]
  6. SORAFENIB OR PLACEBO [Concomitant]
  7. EFFEXOR [Concomitant]

REACTIONS (3)
  - ERYTHEMA MULTIFORME [None]
  - GLOSSITIS [None]
  - TOXIC SKIN ERUPTION [None]
